FAERS Safety Report 8496254-5 (Version None)
Quarter: 2012Q3

REPORT INFORMATION
  Report Type: 
  Country: None (occurrence: None)
  Receive Date: 20120709
  Receipt Date: 20120628
  Transmission Date: 20120928
  Serious: Yes (Hospitalization)
  Sender: FDA-Public Use
  Company Number: US-US-EMD SERONO, INC.-7144460

PATIENT
  Sex: Male
  Weight: 161 kg

DRUGS (1)
  1. REBIF [Suspect]
     Indication: MULTIPLE SCLEROSIS
     Route: 058
     Dates: start: 20100628

REACTIONS (2)
  - MULTIPLE SCLEROSIS RELAPSE [None]
  - ATRIOVENTRICULAR BLOCK [None]
